FAERS Safety Report 9550015 (Version 1)
Quarter: 2013Q3

REPORT INFORMATION
  Report Type: Spontaneous
  Country: US (occurrence: US)
  Receive Date: 20130924
  Receipt Date: 20130924
  Transmission Date: 20140515
  Serious: Yes (Death)
  Sender: FDA-Public Use
  Company Number: US-GLAXOSMITHKLINE-A1042678A

PATIENT
  Age: 66 Year
  Sex: Female

DRUGS (4)
  1. TYKERB [Suspect]
     Indication: BREAST CANCER
     Dosage: 1000MG PER DAY
     Route: 048
     Dates: start: 20120912
  2. DIOVAN [Concomitant]
  3. ZOFRAN [Concomitant]
  4. AMLODIPINE BESYLATE [Concomitant]

REACTIONS (1)
  - Death [Fatal]
